FAERS Safety Report 10493941 (Version 5)
Quarter: 2015Q2

REPORT INFORMATION
  Report Type: Spontaneous
  Country: FR (occurrence: FR)
  Receive Date: 20141003
  Receipt Date: 20150423
  Transmission Date: 20150821
  Serious: Yes (Hospitalization)
  Sender: FDA-Public Use
  Company Number: FR-BIOGENIDEC-2014BI098834

PATIENT
  Age: 16 Year
  Sex: Male

DRUGS (5)
  1. TYSABRI [Suspect]
     Active Substance: NATALIZUMAB
     Indication: FAMILIAL HAEMOPHAGOCYTIC LYMPHOHISTIOCYTOSIS
     Route: 042
     Dates: start: 20130715, end: 201406
  2. CYCLOSPORINE. [Concomitant]
     Active Substance: CYCLOSPORINE
     Indication: FAMILIAL HAEMOPHAGOCYTIC LYMPHOHISTIOCYTOSIS
  3. TYSABRI [Suspect]
     Active Substance: NATALIZUMAB
     Indication: PRODUCT USE ISSUE
     Route: 042
     Dates: start: 201410
  4. TYSABRI [Suspect]
     Active Substance: NATALIZUMAB
     Indication: PRODUCT USE ISSUE
     Route: 042
     Dates: start: 20130715, end: 201406
  5. TYSABRI [Suspect]
     Active Substance: NATALIZUMAB
     Indication: FAMILIAL HAEMOPHAGOCYTIC LYMPHOHISTIOCYTOSIS
     Route: 042
     Dates: start: 201410

REACTIONS (4)
  - Prescribed underdose [Not Recovered/Not Resolved]
  - Histiocytosis haematophagic [Unknown]
  - Product use issue [Not Recovered/Not Resolved]
  - Drug administered to patient of inappropriate age [Not Recovered/Not Resolved]

NARRATIVE: CASE EVENT DATE: 20130715
